FAERS Safety Report 11454614 (Version 1)
Quarter: 2015Q3

REPORT INFORMATION
  Report Type: Spontaneous
  Country: US (occurrence: US)
  Receive Date: 20150831
  Receipt Date: 20150831
  Transmission Date: 20151125
  Serious: No
  Sender: FDA-Public Use
  Company Number: US-ELI_LILLY_AND_COMPANY-US201007006151

PATIENT
  Age: 53 Year
  Sex: Male

DRUGS (5)
  1. SKELAXIN [Concomitant]
     Active Substance: METAXALONE
     Indication: BACK PAIN
     Dosage: 800 MG, 4/D
     Dates: start: 20100125
  2. SKELAXIN [Concomitant]
     Active Substance: METAXALONE
     Dosage: 800 MG, 3/D
     Dates: end: 20010219
  3. MOBIC [Concomitant]
     Active Substance: MELOXICAM
     Indication: BACK PAIN
     Dosage: UNK, UNK
     Dates: start: 20100125, end: 20100219
  4. CYMBALTA [Suspect]
     Active Substance: DULOXETINE HYDROCHLORIDE
     Indication: BACK PAIN
     Dates: start: 20100127, end: 20100127
  5. NAPROXEN. [Concomitant]
     Active Substance: NAPROXEN
     Indication: BACK PAIN

REACTIONS (15)
  - General physical health deterioration [Recovered/Resolved]
  - Arthropathy [Not Recovered/Not Resolved]
  - Pulse abnormal [Recovered/Resolved]
  - Off label use [Recovered/Resolved]
  - Muscle atrophy [Not Recovered/Not Resolved]
  - Decreased activity [Recovered/Resolved]
  - Adverse drug reaction [Not Recovered/Not Resolved]
  - Feeling abnormal [Recovered/Resolved]
  - Burning sensation [Not Recovered/Not Resolved]
  - Peripheral swelling [Not Recovered/Not Resolved]
  - Muscular weakness [Not Recovered/Not Resolved]
  - Tunnel vision [Recovered/Resolved]
  - Muscle spasms [Recovered/Resolved]
  - Tremor [Recovered/Resolved]
  - Heart rate increased [Recovered/Resolved]

NARRATIVE: CASE EVENT DATE: 2010
